FAERS Safety Report 4490609-1 (Version None)
Quarter: 2004Q4

REPORT INFORMATION
  Report Type: 
  Country: None (occurrence: None)
  Receive Date: 20041028
  Receipt Date: 20040929
  Transmission Date: 20050328
  Serious: Yes (Hospitalization)
  Sender: FDA-Public Use
  Company Number: 2004043717

PATIENT
  Age: 74 Year
  Sex: Male

DRUGS (3)
  1. TAHOR (ATORVASTATIN) [Suspect]
     Indication: CORONARY ARTERY DISEASE
     Dosage: 20 MG (1 IN 1 D), ORAL
     Route: 048
     Dates: start: 20000101, end: 20040101
  2. ACENOCOUMAROL (ACENOCOUMAROL) [Concomitant]
  3. MOLSIDOMINE (MOLSIDOMINE) [Concomitant]

REACTIONS (3)
  - CHOLECYSTITIS [None]
  - INAPPROPRIATE ANTIDIURETIC HORMONE SECRETION [None]
  - LUNG NEOPLASM [None]
